FAERS Safety Report 7460419-1 (Version None)
Quarter: 2011Q2

REPORT INFORMATION
  Report Type: 
  Country: None (occurrence: None)
  Receive Date: 20110505
  Receipt Date: 20110427
  Transmission Date: 20111010
  Serious: Yes (Death, Life-Threatening)
  Sender: FDA-Public Use
  Company Number: B0711980A

PATIENT
  Sex: Male
  Weight: 16 kg

DRUGS (18)
  1. ALKERAN [Suspect]
     Dosage: 35MGM2 PER DAY
     Route: 042
     Dates: start: 20020803, end: 20020803
  2. METHOTREXATE [Concomitant]
     Indication: IMMUNOSUPPRESSION
     Dosage: 10MGM2 PER DAY
     Route: 065
     Dates: start: 20020817, end: 20020822
  3. BIOFERMIN R [Concomitant]
     Dosage: 2IUAX PER DAY
     Route: 048
     Dates: end: 20020911
  4. GASTER [Concomitant]
     Dosage: 8MG PER DAY
     Route: 042
     Dates: start: 20020730, end: 20020805
  5. FLUDARA [Suspect]
     Dosage: 30MGM2 PER DAY
     Route: 042
     Dates: start: 20020811, end: 20020812
  6. ALKERAN [Suspect]
     Dosage: 35MGM2 PER DAY
     Route: 042
     Dates: start: 20020807, end: 20020807
  7. BACCIDAL [Concomitant]
     Dosage: 150MG PER DAY
     Route: 048
     Dates: end: 20020911
  8. ALLOPURINOL [Concomitant]
     Dosage: 2.5IUAX PER DAY
     Route: 048
     Dates: start: 20020730, end: 20020905
  9. ALKERAN [Suspect]
     Indication: STEM CELL TRANSPLANT
     Dosage: 35MGM2 PER DAY
     Route: 042
     Dates: start: 20020730, end: 20020730
  10. ALKERAN [Suspect]
     Dosage: 70MGM2 PER DAY
     Route: 042
     Dates: start: 20020810, end: 20020810
  11. PREDONINE [Concomitant]
     Indication: IMMUNOSUPPRESSION
     Dosage: 1MGK PER DAY
     Route: 065
     Dates: start: 20020910, end: 20020913
  12. DIFLUCAN [Concomitant]
     Dosage: 60MG PER DAY
     Route: 048
     Dates: end: 20020911
  13. FUNGIZONE [Concomitant]
     Dosage: 150MG PER DAY
     Route: 042
     Dates: end: 20020904
  14. FLUDARA [Suspect]
     Indication: STEM CELL TRANSPLANT
     Dosage: 30MGM2 PER DAY
     Route: 042
     Dates: start: 20020808, end: 20020809
  15. TACROLIMUS HYDRATE [Concomitant]
     Indication: IMMUNOSUPPRESSION
     Dosage: .5MG PER DAY
     Route: 065
     Dates: start: 20020815, end: 20020830
  16. URSO 250 [Concomitant]
     Dosage: 150MG PER DAY
     Route: 048
     Dates: start: 20020730, end: 20020911
  17. BAKTAR [Concomitant]
     Dosage: 2IUAX PER DAY
     Route: 048
     Dates: end: 20020814
  18. ALLOID G [Concomitant]
     Dosage: 20ML PER DAY
     Route: 048
     Dates: end: 20020911

REACTIONS (6)
  - PULMONARY OEDEMA [None]
  - CARDIAC FAILURE [None]
  - ACUTE GRAFT VERSUS HOST DISEASE [None]
  - HEPATIC FAILURE [None]
  - RENAL FAILURE ACUTE [None]
  - HISTIOCYTOSIS HAEMATOPHAGIC [None]
